FAERS Safety Report 9337462 (Version 1)
Quarter: 2013Q2

REPORT INFORMATION
  Report Type: Report from Study
  Country: CN (occurrence: CN)
  Receive Date: 20130607
  Receipt Date: 20130607
  Transmission Date: 20140414
  Serious: Yes (Hospitalization)
  Sender: FDA-Public Use
  Company Number: CN-PFIZER INC-2013167441

PATIENT
  Age: 65 Year
  Sex: Male
  Weight: 76.8 kg

DRUGS (10)
  1. METHYLPREDNISOLONE [Suspect]
     Dosage: 48 MG, 1X/DAY
     Route: 048
     Dates: start: 20130319, end: 20130329
  2. METHYLPREDNISOLONE [Suspect]
     Dosage: 20 MG, 2X/DAY
     Route: 048
     Dates: start: 20130330, end: 20130520
  3. METHYLPREDNISOLONE [Suspect]
     Dosage: 20 MG, 1X/DAY
     Route: 048
     Dates: start: 20130521, end: 20130523
  4. METHYLPREDNISOLONE [Suspect]
     Dosage: 16 MG, 1X/DAY
     Route: 048
     Dates: start: 20130521, end: 20130523
  5. METHYLPREDNISOLONE [Suspect]
     Dosage: 8 MG, 2X/DAY
     Route: 048
     Dates: start: 20130526, end: 20130529
  6. METHYLPREDNISOLONE [Suspect]
     Dosage: 20 MG, 1X/DAY
     Route: 048
     Dates: start: 20130530
  7. METHYLPREDNISOLONE [Suspect]
     Dosage: 16 MG, 1X/DAY
     Route: 048
     Dates: start: 20130530
  8. PRAZOSIN [Concomitant]
     Indication: BLOOD PRESSURE
     Dosage: UNK
     Route: 048
     Dates: start: 20130330
  9. NIFEDIPINE [Concomitant]
     Indication: BLOOD PRESSURE
     Dosage: UNK
     Route: 048
     Dates: start: 20130321
  10. RAMIPRIL [Concomitant]
     Indication: BLOOD PRESSURE
     Dosage: UNK
     Dates: start: 20130319

REACTIONS (2)
  - Pyrexia [Recovered/Resolved]
  - Asthenia [Recovered/Resolved]
